FAERS Safety Report 7244655-5 (Version None)
Quarter: 2011Q1

REPORT INFORMATION
  Report Type: 
  Country: None (occurrence: None)
  Receive Date: 20110125
  Receipt Date: 20110124
  Transmission Date: 20110831
  Serious: Yes (Hospitalization)
  Sender: FDA-Public Use
  Company Number: AU-AMGEN-AUSSP2010010573

PATIENT
  Sex: Female

DRUGS (8)
  1. NPLATE [Suspect]
     Indication: IDIOPATHIC THROMBOCYTOPENIC PURPURA
  2. PANTOPRAZOLE [Concomitant]
     Dosage: 40 MG, QD
  3. INTRAGAM                           /00025201/ [Suspect]
     Dosage: 57 G, UNK
  4. CALTRATE                           /00108001/ [Concomitant]
  5. VITAMIN A [Concomitant]
  6. BLOOD SUBSTITUTES AND PLASMA PROTEIN FRACTION [Concomitant]
     Dosage: UNK
     Dates: start: 20100831
  7. PAROXETINE HCL [Concomitant]
  8. PREDNISOLONE [Concomitant]
     Dosage: 2MG, DAILY

REACTIONS (7)
  - ACUTE MYOCARDIAL INFARCTION [None]
  - ELECTROCARDIOGRAM ST SEGMENT ELEVATION [None]
  - TACHYCARDIA [None]
  - BLOOD PRESSURE INCREASED [None]
  - CHEST PAIN [None]
  - HYPERTENSION [None]
  - TROPONIN INCREASED [None]
